FAERS Safety Report 8791193 (Version 1)
Quarter: 2012Q4

REPORT INFORMATION
  Report Type: Spontaneous
  Country: US (occurrence: None)
  Receive Date: 20120914
  Receipt Date: 20120914
  Transmission Date: 20130627
  Serious: Yes (Hospitalization)
  Sender: FDA-Public Use
  Company Number: None

PATIENT
  Age: 90 Year
  Sex: Female
  Weight: 38.2 kg

DRUGS (8)
  1. DIGOXIN [Suspect]
     Indication: HEART FAILURE
     Dosage: 125MCG DAILY PO  CHRONIC
     Route: 048
  2. TEMAZEPAM [Concomitant]
  3. CARVEDILOL [Concomitant]
  4. AMIODARONE [Concomitant]
  5. CHOLICALCIFEROL [Concomitant]
  6. MVI [Concomitant]
  7. VIT C [Concomitant]
  8. ASA [Concomitant]

REACTIONS (14)
  - Convulsion [None]
  - Presyncope [None]
  - Bradycardia [None]
  - Blood pressure diastolic decreased [None]
  - Toxicity to various agents [None]
  - Cardioactive drug level increased [None]
  - Hallucination, visual [None]
  - Mobility decreased [None]
  - Cognitive disorder [None]
  - Aphagia [None]
  - Asthenia [None]
  - Failure to thrive [None]
  - Atrial fibrillation [None]
  - Ischaemic cardiomyopathy [None]
